FAERS Safety Report 20875593 (Version 1)
Quarter: 2022Q2

REPORT INFORMATION
  Report Type: Spontaneous
  Country: US (occurrence: US)
  Receive Date: 20220526
  Receipt Date: 20220526
  Transmission Date: 20220721
  Serious: No
  Sender: FDA-Public Use
  Company Number: US-ORGANON-O2205USA002015

PATIENT
  Sex: Female

DRUGS (2)
  1. FOLLISTIM AQ [Suspect]
     Active Substance: FOLLITROPIN
     Indication: Infertility
     Dosage: STRENGTH: 900IU/1.73ML; INJECT 75 TO 450
     Route: 058
     Dates: start: 202201
  2. LEUPROLIDE ACETATE [Concomitant]
     Active Substance: LEUPROLIDE ACETATE
     Dosage: UNK

REACTIONS (2)
  - Hypersensitivity [Unknown]
  - Maternal exposure during pregnancy [Unknown]
